FAERS Safety Report 7947014-2 (Version None)
Quarter: 2011Q4

REPORT INFORMATION
  Report Type: 
  Country: None (occurrence: None)
  Receive Date: 20111129
  Receipt Date: 20111020
  Transmission Date: 20120403
  Serious: Yes (Hospitalization)
  Sender: FDA-Public Use
  Company Number: US-ASTRAZENECA-2011SE63347

PATIENT
  Age: 79 Year
  Sex: Female

DRUGS (1)
  1. VIMOVO [Suspect]
     Indication: CARPAL TUNNEL SYNDROME
     Route: 048

REACTIONS (2)
  - GASTROINTESTINAL HAEMORRHAGE [None]
  - DRUG PRESCRIBING ERROR [None]
